FAERS Safety Report 9165144 (Version 2)
Quarter: 2013Q2

REPORT INFORMATION
  Report Type: Spontaneous
  Country: US (occurrence: US)
  Receive Date: 20130315
  Receipt Date: 20130409
  Transmission Date: 20140414
  Serious: Yes (Hospitalization)
  Sender: FDA-Public Use
  Company Number: US-ALEXION PHARMACEUTICALS INC.-A201300423

PATIENT
  Age: 20 Year
  Sex: Female
  Weight: 76 kg

DRUGS (5)
  1. SOLIRIS 300MG [Suspect]
     Indication: PAROXYSMAL NOCTURNAL HAEMOGLOBINURIA
     Dosage: 600 MG, QW
     Route: 042
     Dates: start: 20091209, end: 20091223
  2. SOLIRIS 300MG [Suspect]
     Dosage: 900 MG, Q2W
     Route: 042
     Dates: start: 20091230
  3. FOLIC ACID [Concomitant]
     Dosage: 4 MG, QD
     Route: 048
     Dates: start: 20090727
  4. PENICILLIN VK [Concomitant]
     Dosage: 500 MG, BID
     Route: 048
     Dates: start: 20110926
  5. MENACTRA [Concomitant]
     Indication: IMMUNISATION
     Dosage: UNK
     Dates: start: 20091217, end: 20091217

REACTIONS (2)
  - Gastroenteritis viral [Recovered/Resolved]
  - Haemoglobin decreased [Recovered/Resolved]
